FAERS Safety Report 18007369 (Version 1)
Quarter: 2020Q3

REPORT INFORMATION
  Report Type: Spontaneous
  Country: US (occurrence: US)
  Receive Date: 20200710
  Receipt Date: 20200710
  Transmission Date: 20201103
  Serious: No
  Sender: FDA-Public Use
  Company Number: None

PATIENT
  Age: 75 Year
  Sex: Female
  Weight: 74.25 kg

DRUGS (11)
  1. ATORVASTATIN [Concomitant]
     Active Substance: ATORVASTATIN
  2. MULTUIVITAMIN [Concomitant]
  3. ELIQUIS [Concomitant]
     Active Substance: APIXABAN
  4. FLECAINIDE [Concomitant]
     Active Substance: FLECAINIDE
  5. DETROL [Concomitant]
     Active Substance: TOLTERODINE TARTRATE
  6. LISINPOPRIL [Concomitant]
  7. GLUCOSAMINE CHONDROITIN [Concomitant]
     Active Substance: CHONDROITIN SULFATE (BOVINE)\GLUCOSAMINE HYDROCHLORIDE
  8. FERROUS SULFATE. [Suspect]
     Active Substance: FERROUS SULFATE
  9. XELPROS [Suspect]
     Active Substance: LATANOPROST
     Indication: GLAUCOMA
     Dates: start: 20200610, end: 20200710
  10. METOPROLOL. [Concomitant]
     Active Substance: METOPROLOL
  11. CRANBERRY EXTRACT [Concomitant]
     Active Substance: CRANBERRY JUICE

REACTIONS (2)
  - Eye irritation [None]
  - Eye pain [None]

NARRATIVE: CASE EVENT DATE: 20200610
